FAERS Safety Report 21392553 (Version 1)
Quarter: 2022Q3

REPORT INFORMATION
  Report Type: Spontaneous
  Country: US (occurrence: US)
  Receive Date: 20220929
  Receipt Date: 20220929
  Transmission Date: 20221027
  Serious: Yes (Other)
  Sender: FDA-Public Use
  Company Number: US-BAYER-2022A131174

PATIENT
  Age: 80 Year
  Sex: Male

DRUGS (1)
  1. CORICIDIN HBP COLD AND FLU [Suspect]
     Active Substance: ACETAMINOPHEN\CHLORPHENIRAMINE MALEATE
     Indication: Nasopharyngitis
     Dosage: CANNOT SWALLOW
     Dates: start: 20220913, end: 20220913

REACTIONS (3)
  - Pharyngeal swelling [Recovering/Resolving]
  - Throat irritation [None]
  - Cough [None]

NARRATIVE: CASE EVENT DATE: 20220901
